FAERS Safety Report 13913124 (Version 1)
Quarter: 2017Q3

REPORT INFORMATION
  Report Type: Spontaneous
  Country: US (occurrence: US)
  Receive Date: 20170828
  Receipt Date: 20170828
  Transmission Date: 20171127
  Serious: No
  Sender: FDA-Public Use
  Company Number: US-ROCHE-1124145

PATIENT
  Sex: Male

DRUGS (4)
  1. CARNITINE [Concomitant]
     Active Substance: CARNITINE
  2. COENZYME Q10 COMPLEX (UNK INGREDIENTS) [Concomitant]
     Route: 065
  3. NUTROPIN [Suspect]
     Active Substance: SOMATROPIN
     Indication: GROWTH HORMONE DEFICIENCY
     Route: 058
     Dates: start: 19970218
  4. ATROPINE. [Concomitant]
     Active Substance: ATROPINE

REACTIONS (6)
  - Oropharyngeal pain [Unknown]
  - Headache [Unknown]
  - Nasal congestion [Unknown]
  - Decreased appetite [Unknown]
  - Abdominal pain upper [Unknown]
  - Vision blurred [Unknown]
